FAERS Safety Report 5406909-4 (Version None)
Quarter: 2007Q3

REPORT INFORMATION
  Report Type: 
  Country: None (occurrence: None)
  Receive Date: 20070807
  Receipt Date: 20070727
  Transmission Date: 20080115
  Serious: Yes (Hospitalization)
  Sender: FDA-Public Use
  Company Number: AU-AMGEN-US229578

PATIENT
  Sex: Male

DRUGS (7)
  1. PANITUMUMAB [Suspect]
     Indication: COLORECTAL CANCER
     Route: 042
     Dates: start: 20070515, end: 20070515
  2. PANITUMUMAB [Suspect]
     Route: 042
     Dates: start: 20070612
  3. IRINOTECAN HCL [Suspect]
  4. NORVASC [Concomitant]
  5. ATENOLOL [Concomitant]
  6. 5-FU [Concomitant]
  7. LEUCOVORIN CALCIUM [Concomitant]

REACTIONS (2)
  - DYSPNOEA [None]
  - HYPERHIDROSIS [None]
